FAERS Safety Report 16297538 (Version 1)
Quarter: 2019Q2

REPORT INFORMATION
  Report Type: Spontaneous
  Country: US (occurrence: US)
  Receive Date: 20190509
  Receipt Date: 20190509
  Transmission Date: 20190711
  Serious: Yes (Life-Threatening, Hospitalization)
  Sender: FDA-Public Use
  Company Number: None

PATIENT
  Age: 45 Year
  Sex: Male
  Weight: 117 kg

DRUGS (1)
  1. METHYLPREDNISOLONE 4MG [Suspect]
     Active Substance: METHYLPREDNISOLONE
     Indication: SINUSITIS
     Route: 048
     Dates: start: 20190422, end: 20190426

REACTIONS (5)
  - Ocular discomfort [None]
  - Myocardial infarction [None]
  - Eye irritation [None]
  - Irritability [None]
  - Erythema [None]

NARRATIVE: CASE EVENT DATE: 20190430
